FAERS Safety Report 5684983-8 (Version None)
Quarter: 2008Q1

REPORT INFORMATION
  Report Type: 
  Country: None (occurrence: None)
  Receive Date: 20080328
  Receipt Date: 20080317
  Transmission Date: 20080703
  Serious: Yes (Hospitalization)
  Sender: FDA-Public Use
  Company Number: BE-ROCHE-542043

PATIENT
  Age: 76 Year
  Sex: Female
  Weight: 58 kg

DRUGS (4)
  1. RIVOTRIL [Suspect]
     Indication: ANXIETY
     Dosage: DOSING REGIMEN: MORNING, NOON, EVENING
     Route: 048
     Dates: start: 20061208, end: 20070906
  2. RIVOTRIL [Suspect]
     Dosage: DOSING REGIMEN: MORNING, EVENING
     Route: 048
     Dates: start: 20070907, end: 20071122
  3. ANTIDEPRESSANTS [Concomitant]
     Dosage: DRUG REPORTED AS: ANTI-DEPRESSIVE AGENT.
  4. SIPRALEXA [Concomitant]

REACTIONS (3)
  - ANXIETY [None]
  - HYPERVENTILATION [None]
  - LOSS OF CONSCIOUSNESS [None]
